FAERS Safety Report 25274774 (Version 1)
Quarter: 2025Q2

REPORT INFORMATION
  Report Type: Spontaneous
  Country: CA (occurrence: CA)
  Receive Date: 20250506
  Receipt Date: 20250506
  Transmission Date: 20250716
  Serious: Yes (Disabling)
  Sender: PFIZER
  Company Number: CA-PFIZER INC-202500093542

PATIENT
  Age: 80 Year
  Sex: Male

DRUGS (21)
  1. LEVOFLOXACIN [Suspect]
     Active Substance: LEVOFLOXACIN
     Indication: Pneumonia pseudomonal
     Dosage: 750 MG, 1X/DAY
  2. PREDNISONE [Suspect]
     Active Substance: PREDNISONE
     Indication: Pneumonia
     Route: 048
  3. PREDNISONE [Suspect]
     Active Substance: PREDNISONE
     Route: 048
  4. ACETAMINOPHEN [Concomitant]
     Active Substance: ACETAMINOPHEN
  5. ASPIRIN [Concomitant]
     Active Substance: ASPIRIN
  6. ALENDRONATE [Concomitant]
     Active Substance: ALENDRONATE SODIUM
  7. AMLODIPINE [Concomitant]
     Active Substance: AMLODIPINE BESYLATE
  8. ATORVASTATIN [Concomitant]
     Active Substance: ATORVASTATIN
  9. CALCIUM CARBONATE [Concomitant]
     Active Substance: CALCIUM CARBONATE
  10. CANDESARTAN [Concomitant]
     Active Substance: CANDESARTAN
  11. DOCUSATE SODIUM [Concomitant]
     Active Substance: DOCUSATE SODIUM
  12. FLUTICASONE PROPIONATE\SALMETEROL XINAFOATE [Concomitant]
     Active Substance: FLUTICASONE PROPIONATE\SALMETEROL XINAFOATE
     Route: 055
  13. INDAPAMIDE [Concomitant]
     Active Substance: INDAPAMIDE
  14. NUBEQA [Concomitant]
     Active Substance: DAROLUTAMIDE
  15. PANTOPRAZOLE [Concomitant]
     Active Substance: PANTOPRAZOLE
  16. ALBUTEROL [Concomitant]
     Active Substance: ALBUTEROL
  17. SENNOSIDES [Concomitant]
     Active Substance: SENNOSIDES
  18. SOLIFENACIN [Concomitant]
     Active Substance: SOLIFENACIN
  19. TIOTROPIUM BROMIDE [Concomitant]
     Active Substance: TIOTROPIUM BROMIDE
  20. VITAMIN B12 [Concomitant]
     Active Substance: CYANOCOBALAMIN
  21. VITAMIN D NOS [Concomitant]
     Active Substance: CHOLECALCIFEROL\ERGOCALCIFEROL

REACTIONS (2)
  - Drug intolerance [Recovering/Resolving]
  - Tendon rupture [Recovering/Resolving]
